FAERS Safety Report 23040440 (Version 1)
Quarter: 2023Q4

REPORT INFORMATION
  Report Type: Other
  Country: US (occurrence: US)
  Receive Date: 20231006
  Receipt Date: 20231006
  Transmission Date: 20240110
  Serious: No
  Sender: FDA-Public Use
  Company Number: US-TRAVERE-2023TVT00186

PATIENT
  Age: 5 Month
  Sex: Female

DRUGS (6)
  1. CHOLBAM [Suspect]
     Active Substance: CHOLIC ACID
     Indication: Cerebrohepatorenal syndrome
     Route: 048
     Dates: end: 20230525
  2. SODIUM [Concomitant]
     Active Substance: SODIUM
  3. PHENOBARBITAL [Concomitant]
     Active Substance: PHENOBARBITAL
  4. VITAMINS [Concomitant]
     Active Substance: VITAMINS
  5. KEPPRA [Concomitant]
     Active Substance: LEVETIRACETAM
  6. GABAPENTIN [Concomitant]
     Active Substance: GABAPENTIN

REACTIONS (1)
  - Hepatomegaly [Unknown]

NARRATIVE: CASE EVENT DATE: 20230101
